FAERS Safety Report 14367460 (Version 1)
Quarter: 2018Q1

REPORT INFORMATION
  Report Type: Spontaneous
  Country: US (occurrence: US)
  Receive Date: 20180109
  Receipt Date: 20180109
  Transmission Date: 20180509
  Serious: Yes (Other)
  Sender: FDA-Public Use
  Company Number: US-009507513-1801USA001761

PATIENT
  Age: 74 Year
  Sex: Male

DRUGS (1)
  1. JANUVIA [Suspect]
     Active Substance: SITAGLIPTIN PHOSPHATE
     Indication: DIABETES MELLITUS
     Dosage: 50 MG, DAILY, THROUGH PERCUTANEOUS ENDOSCOPIC GASTROSTOMY(PEG)
     Dates: start: 201707

REACTIONS (6)
  - Blood glucose increased [Not Recovered/Not Resolved]
  - Wrong technique in product usage process [Unknown]
  - Incorrect route of drug administration [Unknown]
  - Glycosylated haemoglobin increased [Not Recovered/Not Resolved]
  - Gastrostomy [Not Recovered/Not Resolved]
  - Weight increased [Not Recovered/Not Resolved]

NARRATIVE: CASE EVENT DATE: 201710
